FAERS Safety Report 10885526 (Version 1)
Quarter: 2015Q1

REPORT INFORMATION
  Report Type: Spontaneous
  Country: US (occurrence: US)
  Receive Date: 20150304
  Receipt Date: 20150304
  Transmission Date: 20150721
  Serious: No
  Sender: FDA-Public Use
  Company Number: US-TEVA-544540USA

PATIENT
  Sex: Female

DRUGS (1)
  1. QNASL [Suspect]
     Active Substance: BECLOMETHASONE DIPROPIONATE
     Indication: RHINITIS
     Dosage: 80 MICROGRAM DAILY; 2 SPRAYS EACH NOSTRIL ONCE A DAY
     Route: 045
     Dates: start: 20150202, end: 20150202

REACTIONS (1)
  - Wound [Unknown]
